FAERS Safety Report 15810022 (Version 1)
Quarter: 2019Q1

REPORT INFORMATION
  Report Type: Spontaneous
  Country: US (occurrence: US)
  Receive Date: 20190111
  Receipt Date: 20190111
  Transmission Date: 20190417
  Serious: Yes (Hospitalization, Other)
  Sender: FDA-Public Use
  Company Number: US-ROCHE-2130081

PATIENT
  Age: 65 Year
  Sex: Female

DRUGS (10)
  1. MELATONIN [Concomitant]
     Active Substance: MELATONIN
  2. RITUXAN [Suspect]
     Active Substance: RITUXIMAB
     Indication: PRODUCT USED FOR UNKNOWN INDICATION
     Route: 065
  3. PROPRANOLOL [Concomitant]
     Active Substance: PROPRANOLOL HYDROCHLORIDE
  4. IMBRUVICA [Suspect]
     Active Substance: IBRUTINIB
     Indication: MANTLE CELL LYMPHOMA
     Dosage: ONGOING: UNKNOWN
     Route: 048
     Dates: start: 20171109
  5. PREDNISONE. [Concomitant]
     Active Substance: PREDNISONE
  6. TRIAMCINOLONE [Concomitant]
     Active Substance: TRIAMCINOLONE
  7. FLUCONAZOLE. [Concomitant]
     Active Substance: FLUCONAZOLE
  8. ATIVAN [Concomitant]
     Active Substance: LORAZEPAM
  9. TAMOXIFEN [Concomitant]
     Active Substance: TAMOXIFEN
  10. LACTOBACILLUS [Concomitant]
     Active Substance: LACTOBACILLUS ACIDOPHILUS

REACTIONS (10)
  - Abdominal pain upper [Unknown]
  - Scratch [Recovering/Resolving]
  - Nausea [Unknown]
  - Cellulitis [Recovering/Resolving]
  - Diarrhoea [Unknown]
  - Vomiting [Unknown]
  - Bronchitis viral [Unknown]
  - Influenza [Recovering/Resolving]
  - Drug hypersensitivity [Unknown]
  - Cough [Unknown]

NARRATIVE: CASE EVENT DATE: 201804
